FAERS Safety Report 6432576-7 (Version None)
Quarter: 2009Q4

REPORT INFORMATION
  Report Type: 
  Country: None (occurrence: None)
  Receive Date: 20091105
  Receipt Date: 20091022
  Transmission Date: 20100525
  Serious: Yes (Disabling)
  Sender: FDA-Public Use
  Company Number: 2008AP001562

PATIENT
  Age: 69 Year
  Sex: Male

DRUGS (4)
  1. ALLOPURINOL [Suspect]
     Indication: GOUT
     Dosage: 300 MG; QD PO, 300 MG; TAB; PO; QD
     Route: 048
     Dates: end: 20080401
  2. ATENOLOL [Concomitant]
  3. ASPIRIN [Concomitant]
  4. ALLOPURINOL [Concomitant]

REACTIONS (3)
  - DIPLOPIA [None]
  - EYE MOVEMENT DISORDER [None]
  - VISION BLURRED [None]
